FAERS Safety Report 8463065 (Version 2)
Quarter: 2017Q1

REPORT INFORMATION
  Report Type: Spontaneous
  Country: US (occurrence: US)
  Receive Date: 20120316
  Receipt Date: 20170323
  Transmission Date: 20170429
  Serious: Yes (Other)
  Sender: FDA-Public Use
  Company Number: US-PFIZER INC-2012066483

PATIENT
  Age: 62 Year
  Sex: Female
  Weight: 68.03 kg

DRUGS (4)
  1. METFORMIN [Concomitant]
     Active Substance: METFORMIN HYDROCHLORIDE
     Dosage: UNK
  2. SOMAVERT [Suspect]
     Active Substance: PEGVISOMANT
     Indication: PITUITARY TUMOUR
     Dosage: ONCE DAILY
     Route: 058
     Dates: start: 2005, end: 2009
  3. DIOVAN HCT [Concomitant]
     Active Substance: HYDROCHLOROTHIAZIDE\VALSARTAN
     Dosage: UNK
  4. SOMAVERT [Suspect]
     Active Substance: PEGVISOMANT
     Indication: INSULIN-LIKE GROWTH FACTOR INCREASED
     Dosage: UNK
     Route: 058
     Dates: start: 2010

REACTIONS (2)
  - Condition aggravated [Not Recovered/Not Resolved]
  - Cataract [Not Recovered/Not Resolved]

NARRATIVE: CASE EVENT DATE: 201112
